FAERS Safety Report 7559613-0 (Version None)
Quarter: 2011Q2

REPORT INFORMATION
  Report Type: 
  Country: None (occurrence: None)
  Receive Date: 20110617
  Receipt Date: 20110617
  Transmission Date: 20111010
  Serious: No
  Sender: FDA-Public Use
  Company Number: None

PATIENT
  Age: 56 Year
  Sex: Female

DRUGS (1)
  1. TAXOTERE [Suspect]
     Indication: OVARIAN CANCER

REACTIONS (2)
  - PHARYNGEAL DISORDER [None]
  - RASH [None]
